FAERS Safety Report 23395501 (Version 3)
Quarter: 2024Q1

REPORT INFORMATION
  Report Type: Report from Study
  Country: KR (occurrence: KR)
  Receive Date: 20240112
  Receipt Date: 20240125
  Transmission Date: 20240409
  Serious: Yes (Hospitalization, Other)
  Sender: FDA-Public Use
  Company Number: KR-CELLTRION INC.-2023KR025251

PATIENT

DRUGS (20)
  1. INFLIXIMAB [Suspect]
     Active Substance: INFLIXIMAB
     Indication: Ankylosing spondylitis
     Dosage: 120 MG, Q2WEEKS
     Route: 058
     Dates: start: 20230428, end: 20231006
  2. INFLIXIMAB [Suspect]
     Active Substance: INFLIXIMAB
     Indication: Ankylosing spondylitis
     Dosage: 340 MG
     Route: 042
     Dates: start: 20230317
  3. INFLIXIMAB [Suspect]
     Active Substance: INFLIXIMAB
     Dosage: 340 MG
     Route: 042
     Dates: start: 20230330
  4. AROBEST [Concomitant]
     Indication: Spinal osteoarthritis
     Dosage: 20 MG, QD
     Route: 048
     Dates: start: 20230428, end: 20231013
  5. AROBEST [Concomitant]
     Dosage: 20 MG, QD
     Route: 048
     Dates: start: 20231021
  6. CELECOXIB [Concomitant]
     Active Substance: CELECOXIB
     Indication: Ankylosing spondylitis
     Dosage: 200 MG, QD
     Route: 048
     Dates: start: 20230223, end: 20231013
  7. CELECOXIB [Concomitant]
     Active Substance: CELECOXIB
     Dosage: 200 MG, QD
     Route: 048
     Dates: start: 20231006, end: 20231013
  8. CELECOXIB [Concomitant]
     Active Substance: CELECOXIB
     Dosage: 200 MG, QD
     Route: 048
     Dates: start: 20231021
  9. DUAL ATO [Concomitant]
     Indication: Dyslipidaemia
     Dosage: 1 TABLET, QD
     Route: 048
     Dates: start: 2021, end: 20231015
  10. DUAL ATO [Concomitant]
     Dosage: 1 TABLET, QD
     Route: 048
     Dates: start: 20231021
  11. FENOFIBRATE [Concomitant]
     Active Substance: FENOFIBRATE
     Indication: Dyslipidaemia
     Dosage: 160 MG, QD
     Route: 048
     Dates: start: 2018, end: 20231015
  12. FENOFIBRATE [Concomitant]
     Active Substance: FENOFIBRATE
     Dosage: 160 MG, QD
     Route: 048
     Dates: start: 20231021
  13. FINASTERIDE [Concomitant]
     Active Substance: FINASTERIDE
     Indication: Benign prostatic hyperplasia
     Dosage: 5 MG, QD
     Route: 048
     Dates: start: 2020, end: 20231015
  14. FINASTERIDE [Concomitant]
     Active Substance: FINASTERIDE
     Dosage: 5 MG, QD
     Route: 048
     Dates: start: 20231021
  15. SULFASALAZINE [Concomitant]
     Active Substance: SULFASALAZINE
     Indication: Ankylosing spondylitis
     Dosage: 500 MG, BID
     Route: 048
     Dates: start: 20230223, end: 20230315
  16. TEGOPRAZAN [Concomitant]
     Active Substance: TEGOPRAZAN
     Indication: Prophylaxis
     Dosage: 50 MG, QD
     Route: 048
     Dates: start: 20230315, end: 20230427
  17. TENETIN M SR [Concomitant]
     Indication: Diabetes mellitus
     Dosage: 1 TABLET, QD
     Route: 048
     Dates: start: 2022, end: 20231015
  18. TENETIN M SR [Concomitant]
     Dosage: 1 TABLET, QD
     Route: 048
     Dates: start: 20231017
  19. TERAZOSIN HYDROCHLORIDE [Concomitant]
     Active Substance: TERAZOSIN HYDROCHLORIDE
     Indication: Benign prostatic hyperplasia
     Dosage: 2 MG, QD
     Route: 048
     Dates: start: 2020, end: 20231015
  20. TERAZOSIN HYDROCHLORIDE [Concomitant]
     Active Substance: TERAZOSIN HYDROCHLORIDE
     Dosage: 2 MG, QD
     Route: 048
     Dates: start: 20231021

REACTIONS (4)
  - Osteonecrosis [Recovered/Resolved]
  - Condition aggravated [Recovered/Resolved]
  - Spinal stenosis [Not Recovered/Not Resolved]
  - Functional gastrointestinal disorder [Not Recovered/Not Resolved]

NARRATIVE: CASE EVENT DATE: 20230428
